FAERS Safety Report 9614067 (Version 2)
Quarter: 2013Q4

REPORT INFORMATION
  Report Type: Spontaneous
  Country: CL (occurrence: CL)
  Receive Date: 20131011
  Receipt Date: 20131017
  Transmission Date: 20140711
  Serious: Yes (Hospitalization, Other)
  Sender: FDA-Public Use
  Company Number: CL-AMGEN-CHLSP2013071291

PATIENT
  Age: 32 Year
  Sex: Male

DRUGS (5)
  1. ENBREL [Suspect]
     Indication: RHEUMATOID ARTHRITIS
     Dosage: UNK
     Route: 058
     Dates: start: 201307, end: 201309
  2. METHOTREXATE SODIUM [Concomitant]
     Dosage: UNK
  3. CELEBRA [Concomitant]
     Indication: ARTHRITIS
     Dosage: UNK
  4. PREDNISONE [Concomitant]
     Dosage: UNK
  5. CALCIUM [Concomitant]
     Dosage: UNK

REACTIONS (5)
  - Intestinal perforation [Not Recovered/Not Resolved]
  - Eating disorder [Not Recovered/Not Resolved]
  - Swelling [Not Recovered/Not Resolved]
  - Pyrexia [Not Recovered/Not Resolved]
  - Post procedural haemorrhage [Not Recovered/Not Resolved]
